FAERS Safety Report 10607591 (Version 1)
Quarter: 2014Q4

REPORT INFORMATION
  Report Type: Spontaneous
  Country: FR (occurrence: FR)
  Receive Date: 20141125
  Receipt Date: 20141125
  Transmission Date: 20150529
  Serious: Yes (Hospitalization, Other)
  Sender: FDA-Public Use
  Company Number: FR-BRISTOL-MYERS SQUIBB COMPANY-21628979

PATIENT
  Age: 30 Year
  Sex: Male
  Weight: 89 kg

DRUGS (1)
  1. ABILIFY [Suspect]
     Active Substance: ARIPIPRAZOLE
     Indication: PSYCHIATRIC SYMPTOM
     Route: 048
     Dates: start: 200507, end: 201406

REACTIONS (4)
  - Off label use [Unknown]
  - Pathological gambling [Recovering/Resolving]
  - Compulsive sexual behaviour [Recovering/Resolving]
  - Alcoholism [Recovering/Resolving]

NARRATIVE: CASE EVENT DATE: 200701
